FAERS Safety Report 14502981 (Version 2)
Quarter: 2018Q1

REPORT INFORMATION
  Report Type: Spontaneous
  Country: CR (occurrence: CR)
  Receive Date: 20180208
  Receipt Date: 20180310
  Transmission Date: 20180509
  Serious: Yes (Death)
  Sender: FDA-Public Use
  Company Number: CR-ROCHE-2063835

PATIENT
  Sex: Female

DRUGS (2)
  1. HERCEPTIN [Suspect]
     Active Substance: TRASTUZUMAB
     Indication: METASTATIC NEOPLASM
     Dosage: 1 VIAL
     Route: 058
  2. PERJETA [Suspect]
     Active Substance: PERTUZUMAB
     Indication: METASTATIC NEOPLASM
     Dosage: 1 VIAL
     Route: 065

REACTIONS (3)
  - Acute abdomen [Fatal]
  - Intestinal ischaemia [Fatal]
  - Large intestine perforation [Fatal]

NARRATIVE: CASE EVENT DATE: 201801
